FAERS Safety Report 7178715-4 (Version None)
Quarter: 2010Q4

REPORT INFORMATION
  Report Type: 
  Country: None (occurrence: None)
  Receive Date: 20101221
  Receipt Date: 20101207
  Transmission Date: 20110411
  Serious: Yes (Hospitalization, Other)
  Sender: FDA-Public Use
  Company Number: JP-RANBAXY-2010RR-40394

PATIENT
  Age: 44 Year
  Sex: Male

DRUGS (11)
  1. LEVOFLOXACIN [Suspect]
     Indication: PNEUMONIA LEGIONELLA
     Dosage: 750 MG, UNK
     Route: 042
  2. LEVOFLOXACIN [Suspect]
     Indication: PNEUMONIA
     Dosage: 1500 MG, UNK
     Route: 042
  3. PIPERACILLIN AND TAZOBACTAM [Suspect]
     Indication: PRODUCT USED FOR UNKNOWN INDICATION
     Dosage: 13.5 G, UNK
     Route: 042
  4. CLARITHROMYCIN [Suspect]
     Indication: PRODUCT USED FOR UNKNOWN INDICATION
     Dosage: 1 G, UNK
     Route: 048
  5. AMOXICILLIN AND CLAVULANATE POTASSIUM [Suspect]
     Indication: ASTHENIA
     Route: 048
  6. AMOXICILLIN AND CLAVULANATE POTASSIUM [Suspect]
     Indication: HEADACHE
  7. AMOXICILLIN AND CLAVULANATE POTASSIUM [Suspect]
     Indication: HYPERPYREXIA
  8. RIFAMPICIN [Concomitant]
     Indication: PNEUMONIA
     Dosage: 900 MG, UNK
  9. FLUCONAZOLE [Concomitant]
     Indication: PNEUMONIA LEGIONELLA
     Dosage: 800 MG, UNK
     Route: 042
  10. METHYLPREDNISOLONE [Concomitant]
     Indication: PNEUMONIA LEGIONELLA
     Dosage: 120 MG, UNK
     Route: 042
  11. METHYLPREDNISOLONE [Concomitant]
     Dosage: 1 G, UNK
     Route: 042

REACTIONS (6)
  - DRUG INEFFECTIVE [None]
  - EOSINOPHILIC PNEUMONIA ACUTE [None]
  - MUSCLE FATIGUE [None]
  - PLEURAL EFFUSION [None]
  - PNEUMOTHORAX [None]
  - RESPIRATORY DISTRESS [None]
